FAERS Safety Report 6638120-3 (Version None)
Quarter: 2010Q1

REPORT INFORMATION
  Report Type: 
  Country: None (occurrence: None)
  Receive Date: 20100312
  Receipt Date: 20100308
  Transmission Date: 20100710
  Serious: Yes (Hospitalization)
  Sender: FDA-Public Use
  Company Number: 10-054

PATIENT
  Age: 71 Year
  Sex: Male

DRUGS (21)
  1. ALEVE [Suspect]
     Indication: BACK PAIN
     Dosage: 440 MG, DAILY, ORAL
     Route: 048
     Dates: start: 20100111
  2. LASIX [Concomitant]
  3. ALEVE (CAPLET) [Concomitant]
  4. VENLAFAXINE [Concomitant]
  5. HYDRALAZINE HCL [Concomitant]
  6. OMEPRAZOLE [Concomitant]
  7. NORVASC [Concomitant]
  8. RESTORIL [Concomitant]
  9. OXYCODONE [Concomitant]
  10. ATENOLOL [Concomitant]
  11. FORTAZ [Concomitant]
  12. COZAAR [Concomitant]
  13. FERROUS SULFATE TAB [Concomitant]
  14. CETIRIZINE HCL [Concomitant]
  15. FOSAMAX [Concomitant]
  16. FLONASE [Concomitant]
  17. MULTI-VITAMIN [Concomitant]
  18. ASPIRIN [Concomitant]
  19. FLOMAX [Concomitant]
  20. SIMVASTATIN [Concomitant]
  21. TERAZOSIN HCL [Concomitant]

REACTIONS (10)
  - BLOOD PRESSURE DECREASED [None]
  - DIZZINESS [None]
  - EXOPHTHALMOS [None]
  - HYPOXIA [None]
  - KIDNEY INFECTION [None]
  - LOSS OF CONSCIOUSNESS [None]
  - MALAISE [None]
  - RENAL FAILURE ACUTE [None]
  - SEPSIS [None]
  - URINARY INCONTINENCE [None]
